FAERS Safety Report 7375746-6 (Version None)
Quarter: 2011Q1

REPORT INFORMATION
  Report Type: 
  Country: None (occurrence: None)
  Receive Date: 20110325
  Receipt Date: 20110311
  Transmission Date: 20110831
  Serious: Yes (Other)
  Sender: FDA-Public Use
  Company Number: CA-JNJFOC-20110306745

PATIENT
  Sex: Male
  Weight: 77.9 kg

DRUGS (2)
  1. REMICADE [Suspect]
     Indication: CROHN'S DISEASE
     Dosage: INFUSION #9
     Route: 042
  2. CELEBREX [Concomitant]
     Route: 065

REACTIONS (7)
  - DYSPNOEA [None]
  - DIZZINESS [None]
  - HEADACHE [None]
  - LACRIMATION INCREASED [None]
  - THROAT TIGHTNESS [None]
  - INFUSION RELATED REACTION [None]
  - CHEST DISCOMFORT [None]
